FAERS Safety Report 18673480 (Version 1)
Quarter: 2020Q4

REPORT INFORMATION
  Report Type: Spontaneous
  Country: US (occurrence: US)
  Receive Date: 20201228
  Receipt Date: 20201228
  Transmission Date: 20210114
  Serious: No
  Sender: FDA-Public Use
  Company Number: US-PFIZER INC-2020276099

PATIENT
  Age: 78 Year
  Sex: Female
  Weight: 60.33 kg

DRUGS (4)
  1. IBRANCE [Suspect]
     Active Substance: PALBOCICLIB
     Dosage: 100 MG
  2. IBRANCE [Suspect]
     Active Substance: PALBOCICLIB
     Indication: BREAST CANCER METASTATIC
     Dosage: 125 MG
  3. IBRANCE [Suspect]
     Active Substance: PALBOCICLIB
     Dosage: 75 MG, CYCLIC (75 MG FOR 3 WEEKS AND ONE WEEK OFF)
     Dates: start: 2020
  4. LETROZOLE. [Concomitant]
     Active Substance: LETROZOLE
     Dosage: UNK
     Dates: start: 2020

REACTIONS (2)
  - White blood cell count decreased [Unknown]
  - Neoplasm progression [Unknown]
